FAERS Safety Report 24621618 (Version 1)
Quarter: 2024Q4

REPORT INFORMATION
  Report Type: Spontaneous
  Country: US (occurrence: US)
  Receive Date: 20241114
  Receipt Date: 20241114
  Transmission Date: 20250114
  Serious: No
  Sender: SANOFI AVENTIS
  Company Number: US-SA-2024SA325880

PATIENT
  Age: 59 Year
  Sex: Male
  Weight: 98.8 kg

DRUGS (1)
  1. NEXVIAZYME [Suspect]
     Active Substance: AVALGLUCOSIDASE ALFA-NGPT
     Indication: Glycogen storage disease type II
     Dosage: 2000.000MG QOW
     Route: 042
     Dates: start: 202407

REACTIONS (1)
  - Weight increased [Unknown]
